FAERS Safety Report 13768900 (Version 2)
Quarter: 2017Q3

REPORT INFORMATION
  Report Type: Spontaneous
  Country: US (occurrence: US)
  Receive Date: 20170719
  Receipt Date: 20170721
  Transmission Date: 20171127
  Serious: Yes (Other)
  Sender: FDA-Public Use
  Company Number: US-LUNDBECK-DKLU2033805

PATIENT
  Age: 57 Year
  Sex: Female

DRUGS (4)
  1. NORTHERA [Suspect]
     Active Substance: DROXIDOPA
     Route: 048
  2. NORTHERA [Suspect]
     Active Substance: DROXIDOPA
     Indication: AUTONOMIC NEUROPATHY
     Dosage: SCHEDULE B AND TITRATING
     Route: 048
     Dates: start: 20170620
  3. NORTHERA [Suspect]
     Active Substance: DROXIDOPA
     Route: 048
  4. NORTHERA [Suspect]
     Active Substance: DROXIDOPA
     Route: 048
     Dates: start: 20170713

REACTIONS (11)
  - Insomnia [Unknown]
  - Therapeutic response unexpected [Unknown]
  - Loss of consciousness [Unknown]
  - Contusion [Unknown]
  - Headache [Unknown]
  - Weight decreased [Unknown]
  - Blood pressure increased [Recovered/Resolved]
  - Loss of personal independence in daily activities [Unknown]
  - Dyspnoea [Unknown]
  - Syncope [Unknown]
  - Chest discomfort [Unknown]

NARRATIVE: CASE EVENT DATE: 20170704
